FAERS Safety Report 17229178 (Version 1)
Quarter: 2020Q1

REPORT INFORMATION
  Report Type: Spontaneous
  Country: US (occurrence: US)
  Receive Date: 20200102
  Receipt Date: 20200102
  Transmission Date: 20200409
  Serious: Yes (Hospitalization)
  Sender: FDA-Public Use
  Company Number: None

PATIENT
  Age: 11 Year
  Sex: Female

DRUGS (6)
  1. KEPPRA [Concomitant]
     Active Substance: LEVETIRACETAM
  2. EPIDIOLEX [Suspect]
     Active Substance: CANNABIDIOL
     Indication: LENNOX-GASTAUT SYNDROME
     Route: 048
     Dates: start: 20190712
  3. TRIAMCINOLONE OINTMENT 0.025% [Concomitant]
  4. SYMPAZAN 5MG [Concomitant]
  5. TRILEPTAL [Concomitant]
     Active Substance: OXCARBAZEPINE
  6. VALPROIC ACID 250MG/ML [Concomitant]

REACTIONS (1)
  - Seizure [None]

NARRATIVE: CASE EVENT DATE: 20191212
